FAERS Safety Report 4444312-4 (Version None)
Quarter: 2004Q3

REPORT INFORMATION
  Report Type: 
  Country: None (occurrence: None)
  Receive Date: 20040729
  Receipt Date: 20031201
  Transmission Date: 20050211
  Serious: Yes (Death)
  Sender: FDA-Public Use
  Company Number: USA-2003-0011565

PATIENT
  Age: 48 Year
  Sex: Female
  Weight: 72.1 kg

DRUGS (8)
  1. MORPHINE SULFATE [Suspect]
  2. VENLAFAXINE HCL [Suspect]
  3. DIPHENHYDRAMINE HCL [Suspect]
  4. CANNABIS (CANNABIS) [Suspect]
  5. SALICYLATES (SALICYLATES) [Suspect]
  6. GABAPENTIN [Suspect]
  7. VALPROIC ACID [Suspect]
  8. NICOTINE [Suspect]

REACTIONS (2)
  - INTENTIONAL OVERDOSE [None]
  - MULTIPLE DRUG OVERDOSE [None]
